FAERS Safety Report 21134525 (Version 1)
Quarter: 2022Q3

REPORT INFORMATION
  Report Type: Spontaneous
  Country: PK (occurrence: PK)
  Receive Date: 20220726
  Receipt Date: 20220726
  Transmission Date: 20221026
  Serious: Yes (Disabling)
  Sender: FDA-Public Use
  Company Number: ALC2022PK003016

PATIENT
  Age: 45 Year
  Sex: Female

DRUGS (1)
  1. SIMBRINZA [Suspect]
     Active Substance: BRIMONIDINE TARTRATE\BRINZOLAMIDE
     Indication: Open angle glaucoma
     Dosage: 10 MG, BID ((10 MG/ML BRINZOLAMIDE +2 MG/ML)
     Route: 047
     Dates: start: 20220601, end: 20220614

REACTIONS (2)
  - Drug ineffective [Not Recovered/Not Resolved]
  - Intraocular pressure increased [Unknown]

NARRATIVE: CASE EVENT DATE: 20220601
